FAERS Safety Report 13187204 (Version 1)
Quarter: 2017Q1

REPORT INFORMATION
  Report Type: Spontaneous
  Country: FR (occurrence: FR)
  Receive Date: 20170206
  Receipt Date: 20170206
  Transmission Date: 20170428
  Serious: Yes (Life-Threatening)
  Sender: FDA-Public Use
  Company Number: FR-ROCHE-1889274

PATIENT
  Age: 50 Year
  Sex: Male

DRUGS (5)
  1. LOXAPAC [Interacting]
     Active Substance: LOXAPINE SUCCINATE
     Indication: DEPRESSION
     Route: 048
     Dates: end: 20161224
  2. SULFARLEM S25 [Concomitant]
     Route: 048
     Dates: end: 20161224
  3. VALIUM [Suspect]
     Active Substance: DIAZEPAM
     Indication: DEPRESSION
     Route: 048
     Dates: end: 20161224
  4. ZOLPIDEM [Interacting]
     Active Substance: ZOLPIDEM\ZOLPIDEM TARTRATE
     Indication: DEPRESSION
     Route: 048
     Dates: end: 20161224
  5. PAROXETINE. [Concomitant]
     Active Substance: PAROXETINE
     Indication: DEPRESSION
     Route: 048
     Dates: end: 20161224

REACTIONS (3)
  - Acute respiratory distress syndrome [Recovered/Resolved]
  - Pneumonia aspiration [Recovered/Resolved]
  - Drug interaction [Unknown]

NARRATIVE: CASE EVENT DATE: 20161224
